FAERS Safety Report 4815880-5 (Version None)
Quarter: 2005Q4

REPORT INFORMATION
  Report Type: 
  Country: None (occurrence: None)
  Receive Date: 20051031
  Receipt Date: 20051020
  Transmission Date: 20060501
  Serious: Yes (Other)
  Sender: FDA-Public Use
  Company Number: US-JNJFOC-20051005127

PATIENT
  Sex: Female
  Weight: 70.76 kg

DRUGS (4)
  1. TOPAMAX [Suspect]
     Indication: MIGRAINE PROPHYLAXIS
     Route: 048
  2. TRAZODONE HCL [Concomitant]
     Indication: INSOMNIA
  3. ALLEGRA [Concomitant]
  4. IMITREX [Concomitant]
     Indication: MIGRAINE

REACTIONS (6)
  - CARDIOMYOPATHY [None]
  - CHEST PAIN [None]
  - INSOMNIA [None]
  - NERVOUSNESS [None]
  - TACHYCARDIA [None]
  - TREMOR [None]
